FAERS Safety Report 5747500-X (Version None)
Quarter: 2008Q2

REPORT INFORMATION
  Report Type: 
  Country: None (occurrence: None)
  Receive Date: 20080523
  Receipt Date: 20080512
  Transmission Date: 20081010
  Serious: Yes (Hospitalization)
  Sender: FDA-Public Use
  Company Number: US-ROCHE-564061

PATIENT
  Age: 91 Year
  Sex: Female

DRUGS (2)
  1. BONIVA [Suspect]
     Indication: DRUG USE FOR UNKNOWN INDICATION
     Dosage: TAKEN FROM SEVERAL YEARS
     Route: 065
  2. IMDUR [Concomitant]
     Indication: BLOOD PRESSURE
     Dosage: INDICATION REPORTED AS HEART/ BLOOD PRESSURE

REACTIONS (4)
  - FALL [None]
  - HEADACHE [None]
  - PELVIC FRACTURE [None]
  - VISUAL DISTURBANCE [None]
